FAERS Safety Report 22060662 (Version 2)
Quarter: 2023Q1

REPORT INFORMATION
  Report Type: Spontaneous
  Country: CH (occurrence: CH)
  Receive Date: 20230303
  Receipt Date: 20230316
  Transmission Date: 20230418
  Serious: Yes (Other)
  Sender: FDA-Public Use
  Company Number: CH-009507513-2302CHE009007

PATIENT
  Sex: Male

DRUGS (1)
  1. BCG LIVE [Suspect]
     Active Substance: BACILLUS CALMETTE-GUERIN SUBSTRAIN TICE LIVE ANTIGEN
     Indication: Bladder cancer
     Dosage: UNK

REACTIONS (3)
  - Bladder cancer recurrent [Unknown]
  - Transurethral bladder resection [Unknown]
  - Product availability issue [Unknown]
